FAERS Safety Report 23053080 (Version 2)
Quarter: 2024Q1

REPORT INFORMATION
  Report Type: Spontaneous
  Country: ES (occurrence: ES)
  Receive Date: 20231011
  Receipt Date: 20240102
  Transmission Date: 20240410
  Serious: Yes (Other)
  Sender: FDA-Public Use
  Company Number: ES-NOVOPROD-1123388

PATIENT
  Age: 65 Year
  Sex: Male

DRUGS (1)
  1. NOVORAPID [Suspect]
     Active Substance: INSULIN ASPART
     Indication: Product used for unknown indication
     Dosage: UNK

REACTIONS (2)
  - Blood glucose increased [Unknown]
  - Device mechanical issue [Unknown]
